FAERS Safety Report 6928257-3 (Version None)
Quarter: 2010Q3

REPORT INFORMATION
  Report Type: 
  Country: None (occurrence: None)
  Receive Date: 20100817
  Receipt Date: 20100812
  Transmission Date: 20110219
  Serious: Yes (Hospitalization, Other)
  Sender: FDA-Public Use
  Company Number: DE-ROCHE-719784

PATIENT
  Sex: Male
  Weight: 65 kg

DRUGS (7)
  1. VALCYTE [Suspect]
     Route: 048
     Dates: start: 20100729, end: 20100729
  2. VALCYTE [Suspect]
     Route: 048
     Dates: start: 20100727
  3. CYCLOSPORINE [Concomitant]
     Indication: PROPHYLAXIS AGAINST GRAFT VERSUS HOST DISEASE
     Route: 048
     Dates: start: 20100621
  4. PANTOPRAZOLE SODIUM [Concomitant]
     Indication: PROPHYLAXIS
     Route: 048
     Dates: start: 20100612
  5. COTRIM [Concomitant]
     Route: 048
     Dates: start: 20100626
  6. MAGNESIUM [Concomitant]
     Route: 048
     Dates: start: 20100701
  7. POSACONAZOLE [Concomitant]
     Indication: ANTIFUNGAL PROPHYLAXIS
     Route: 048
     Dates: start: 20100612

REACTIONS (2)
  - HEADACHE [None]
  - HERPES SIMPLEX [None]
